FAERS Safety Report 5577718-0 (Version None)
Quarter: 2007Q4

REPORT INFORMATION
  Report Type: 
  Country: None (occurrence: None)
  Receive Date: 20071227
  Receipt Date: 20071212
  Transmission Date: 20080405
  Serious: Yes (Hospitalization)
  Sender: FDA-Public Use
  Company Number: POMP-11284

PATIENT
  Age: 16 Month
  Sex: Male
  Weight: 10.4 kg

DRUGS (17)
  1. MYOZYME [Suspect]
     Indication: GLYCOGEN STORAGE DISEASE TYPE II
     Dosage: 40 MG/KG, Q2W, INTRAVENOUS, 30 MG/KG, Q2W, ITRAVENOUS, 20 MG/KG, Q2W, INTRAVENOUS
     Route: 042
     Dates: start: 20060911, end: 20070401
  2. MYOZYME [Suspect]
     Indication: GLYCOGEN STORAGE DISEASE TYPE II
     Dosage: 40 MG/KG, Q2W, INTRAVENOUS, 30 MG/KG, Q2W, ITRAVENOUS, 20 MG/KG, Q2W, INTRAVENOUS
     Route: 042
     Dates: start: 20070509, end: 20070701
  3. MYOZYME [Suspect]
     Indication: GLYCOGEN STORAGE DISEASE TYPE II
     Dosage: 40 MG/KG, Q2W, INTRAVENOUS, 30 MG/KG, Q2W, ITRAVENOUS, 20 MG/KG, Q2W, INTRAVENOUS
     Route: 042
     Dates: start: 20070801
  4. RITUXIMAB (RITUXIMAB) [Concomitant]
  5. METHOTREXATE [Concomitant]
  6. IMMUNE GLOBULIN INTRAVENOUS (HUMAN) [Concomitant]
  7. BENADRYL [Concomitant]
  8. ACETAMINOPHEN [Concomitant]
  9. FLOVENT [Concomitant]
  10. FUROSEMIDE [Concomitant]
  11. CULTURELLE (LACTOBACILLUS NOS) [Concomitant]
  12. PREVACID [Concomitant]
  13. XOPENEX [Concomitant]
  14. SEPTRA [Concomitant]
  15. SYNAGIS [Concomitant]
  16. ARANESP [Concomitant]
  17. SODIUM CHLORIDE 0.9% [Concomitant]

REACTIONS (7)
  - BLOOD CULTURE POSITIVE [None]
  - CATHETER RELATED COMPLICATION [None]
  - MEDICAL DEVICE COMPLICATION [None]
  - RESPIRATORY DISORDER [None]
  - STAPHYLOCOCCAL INFECTION [None]
  - TRACHEOBRONCHITIS [None]
  - TRACHEOSTOMY INFECTION [None]
